FAERS Safety Report 4595580-X (Version None)
Quarter: 2005Q1

REPORT INFORMATION
  Report Type: 
  Country: None (occurrence: None)
  Receive Date: 20050224
  Receipt Date: 20050203
  Transmission Date: 20050727
  Serious: Yes (Hospitalization, Disabling, Other)
  Sender: FDA-Public Use
  Company Number: US_0502112084

PATIENT
  Sex: Male
  Weight: 118 kg

DRUGS (4)
  1. HUMALOG [Suspect]
     Dosage: 15 U DAY
     Dates: start: 20040701
  2. HUMULIN N [Suspect]
  3. HUMULIN R [Suspect]
  4. LANTUS [Concomitant]

REACTIONS (7)
  - BEDRIDDEN [None]
  - BLOOD GLUCOSE INCREASED [None]
  - BONE INFECTION [None]
  - DIABETIC FOOT [None]
  - HYPOKINESIA [None]
  - IMPAIRED HEALING [None]
  - INFECTED SKIN ULCER [None]
